FAERS Safety Report 17485757 (Version 1)
Quarter: 2020Q1

REPORT INFORMATION
  Report Type: Spontaneous
  Country: FR (occurrence: FR)
  Receive Date: 20200303
  Receipt Date: 20200303
  Transmission Date: 20200409
  Serious: Yes (Other)
  Sender: FDA-Public Use
  Company Number: FR-TEVA-2020-FR-1193747

PATIENT
  Age: 55 Year
  Sex: Female
  Weight: 85 kg

DRUGS (11)
  1. LOVENOX [Concomitant]
     Active Substance: ENOXAPARIN SODIUM
     Route: 048
     Dates: start: 20200118
  2. LEVOFLOXACINE [Suspect]
     Active Substance: LEVOFLOXACIN
     Indication: ESCHERICHIA PYELONEPHRITIS
     Route: 048
     Dates: start: 20200113, end: 20200117
  3. SODIUM BICARBONATE AGUETTANT [Concomitant]
     Route: 065
     Dates: start: 20200117
  4. LANSOPRAZOLE. [Concomitant]
     Active Substance: LANSOPRAZOLE
     Route: 048
     Dates: start: 20200118
  5. CORTANCYL [Concomitant]
     Active Substance: PREDNISONE
     Dosage: 15 MG
     Route: 048
  6. ROCEPHINE [Concomitant]
     Active Substance: CEFTRIAXONE SODIUM
     Indication: ESCHERICHIA PYELONEPHRITIS
     Route: 030
     Dates: start: 20200111, end: 20200113
  7. PARACETAMOL ARROW [Concomitant]
     Active Substance: ACETAMINOPHEN
     Dosage: 4 GRAM
     Route: 048
     Dates: start: 20200117, end: 20200120
  8. GAVISCON [Concomitant]
     Active Substance: ALUMINUM HYDROXIDE\MAGNESIUM CARBONATE
     Dates: start: 20200118
  9. AMOXICILLINE ARROW 1 G, COMPRIM? PELLICUL? DISPERSIBLE [Concomitant]
     Active Substance: AMOXICILLIN
     Indication: ESCHERICHIA PYELONEPHRITIS
     Dosage: 3 DF
     Route: 048
     Dates: start: 20200117, end: 20200127
  10. NEFOPAM (CHLORHYDRATE DE) [Concomitant]
     Active Substance: NEFOPAM HYDROCHLORIDE
     Route: 065
     Dates: start: 20200117
  11. NOVATREX (METHOTREXATE) [Concomitant]
     Active Substance: METHOTREXATE SODIUM
     Indication: PERIPHERAL T-CELL LYMPHOMA UNSPECIFIED
     Dosage: 7.5 MG
     Route: 048
     Dates: start: 201911, end: 20200111

REACTIONS (1)
  - Hepatocellular injury [Recovering/Resolving]

NARRATIVE: CASE EVENT DATE: 20200120
